FAERS Safety Report 9050905 (Version 2)
Quarter: 2013Q2

REPORT INFORMATION
  Report Type: Spontaneous
  Country: GB (occurrence: GB)
  Receive Date: 20130205
  Receipt Date: 20130412
  Transmission Date: 20140414
  Serious: Yes (Other)
  Sender: FDA-Public Use
  Company Number: GB-PFIZER INC-2013043637

PATIENT
  Age: 44 Year
  Sex: Male

DRUGS (2)
  1. VIAGRA [Suspect]
     Dosage: 60 MG, UNK
  2. VIAGRA [Suspect]
     Dosage: 25 MG, UNK

REACTIONS (4)
  - Tachycardia [Unknown]
  - Hypotension [Unknown]
  - Activities of daily living impaired [Unknown]
  - Pain in extremity [Unknown]
